FAERS Safety Report 10570247 (Version 1)
Quarter: 2014Q4

REPORT INFORMATION
  Report Type: Spontaneous
  Country: IR (occurrence: None)
  Receive Date: 20141105
  Receipt Date: 20141105
  Transmission Date: 20150529
  Serious: Yes (Hospitalization)
  Sender: FDA-Public Use
  Company Number: IMP_08007_2014

PATIENT
  Age: 30 Year
  Sex: Female

DRUGS (2)
  1. DIVALPROEX SODIUM. [Suspect]
     Active Substance: DIVALPROEX SODIUM
     Dosage: 1X, (ONCE) ORAL, DF NOT CONTINUING, ( 1 DAY UNTIL 4 YEARS UNTIL UKNOWN)
     Route: 048
  2. PHENOBARBITAL. [Suspect]
     Active Substance: PHENOBARBITAL
     Dosage: (DF (ONCE) ORAL 1 DAY UNTIL NOT CONTINUING
     Route: 048

REACTIONS (5)
  - Intentional overdose [None]
  - Exposure via ingestion [None]
  - Mydriasis [None]
  - Loss of consciousness [None]
  - Suicide attempt [None]
